FAERS Safety Report 5698028-7 (Version None)
Quarter: 2008Q2

REPORT INFORMATION
  Report Type: 
  Country: None (occurrence: None)
  Receive Date: 20080408
  Receipt Date: 20080329
  Transmission Date: 20081010
  Serious: Yes (Other)
  Sender: FDA-Public Use
  Company Number: US-PFIZER INC-2008020281

PATIENT
  Sex: Male
  Weight: 81.818 kg

DRUGS (3)
  1. VIAGRA [Suspect]
     Indication: ERECTILE DYSFUNCTION
     Dates: start: 20070901, end: 20070901
  2. ENALAPRIL MALEATE [Concomitant]
  3. CHLORTHALIDONE [Concomitant]

REACTIONS (5)
  - ARTHRALGIA [None]
  - FATIGUE [None]
  - HYPERSENSITIVITY [None]
  - JOINT SWELLING [None]
  - WEIGHT DECREASED [None]
